FAERS Safety Report 9462892 (Version 1)
Quarter: 2013Q3

REPORT INFORMATION
  Report Type: Spontaneous
  Country: IT (occurrence: None)
  Receive Date: 20130814
  Receipt Date: 20130814
  Transmission Date: 20140515
  Serious: Yes (Other)
  Sender: FDA-Public Use
  Company Number: 1839819

PATIENT
  Age: 87 Year
  Sex: Male

DRUGS (5)
  1. CARBOPLATIN [Suspect]
     Indication: BLADDER CANCER
     Dosage: 200 MG MILLIGRAM(S), CYCLICAL, INTRAVENOUS
     Route: 042
     Dates: start: 20130410, end: 20130613
  2. DEXAMETHASONE [Concomitant]
  3. ONDANSETRON HYDROCHLORIDE) [Concomitant]
  4. TRIMETON [Concomitant]
  5. DELTACORTENE [Concomitant]

REACTIONS (3)
  - Dysphonia [None]
  - Pruritus [None]
  - Erythema [None]
